FAERS Safety Report 18462554 (Version 7)
Quarter: 2022Q1

REPORT INFORMATION
  Report Type: Spontaneous
  Country: US (occurrence: US)
  Receive Date: 20201104
  Receipt Date: 20220211
  Transmission Date: 20220423
  Serious: No
  Sender: FDA-Public Use
  Company Number: US-PFIZER INC-2018346944

PATIENT
  Age: 9 Year
  Sex: Male
  Weight: 23.583 kg

DRUGS (15)
  1. GENOTROPIN [Suspect]
     Active Substance: SOMATROPIN
     Indication: Blood growth hormone
     Dosage: UNK
     Dates: start: 201807
  2. GENOTROPIN [Suspect]
     Active Substance: SOMATROPIN
     Indication: Short stature
     Dosage: 1 MG, 1X/DAY (NIGHTLY)
     Dates: start: 201808
  3. GENOTROPIN [Suspect]
     Active Substance: SOMATROPIN
     Dosage: 1 ML, 1X/DAY
     Dates: start: 201808
  4. GENOTROPIN [Suspect]
     Active Substance: SOMATROPIN
     Dosage: 1 MG, 7 DAYS PER WEEK
  5. GENOTROPIN [Suspect]
     Active Substance: SOMATROPIN
     Dosage: 0.4 MG, TOOK A DOSE TONIGHT
  6. GENOTROPIN [Suspect]
     Active Substance: SOMATROPIN
     Dosage: 1.2 MG, UNK
  7. GENOTROPIN [Suspect]
     Active Substance: SOMATROPIN
     Dosage: 1.2 MG, DAILY
     Dates: start: 201808
  8. GENOTROPIN [Suspect]
     Active Substance: SOMATROPIN
     Dosage: 1.2 MG, 1X/DAY
     Route: 058
     Dates: start: 2019
  9. GENOTROPIN [Suspect]
     Active Substance: SOMATROPIN
     Dosage: 1.4 MG, 1X/DAY, ONCE DAILY INJECTION
  10. PREVACID [Concomitant]
     Active Substance: LANSOPRAZOLE
     Indication: Eosinophilic oesophagitis
     Dosage: 50 MG, 2X/DAY
  11. ZYRTEC [Concomitant]
     Active Substance: CETIRIZINE HYDROCHLORIDE
     Indication: Hypersensitivity
     Dosage: 5 MG, 1X/DAY
     Route: 048
  12. BUDESONIDE [Concomitant]
     Active Substance: BUDESONIDE
     Indication: Eosinophilic oesophagitis
     Dosage: 1 DF, 2X/DAY (1 AMPULE)
  13. SINGULAIR [Concomitant]
     Active Substance: MONTELUKAST SODIUM
     Indication: Asthma
     Dosage: UNK
  14. SINGULAIR [Concomitant]
     Active Substance: MONTELUKAST SODIUM
     Indication: Hypersensitivity
  15. FLOVENT [Concomitant]
     Active Substance: FLUTICASONE PROPIONATE
     Indication: Eosinophilic oesophagitis
     Dosage: UNK

REACTIONS (9)
  - Drug dose omission by device [Unknown]
  - Incorrect dose administered [Unknown]
  - Poor quality device used [Unknown]
  - Device breakage [Unknown]
  - Device malfunction [Unknown]
  - Device issue [Unknown]
  - Device leakage [Unknown]
  - Device information output issue [Unknown]
  - Wrong technique in device usage process [Unknown]

NARRATIVE: CASE EVENT DATE: 20180919
